FAERS Safety Report 5823235-X (Version None)
Quarter: 2008Q3

REPORT INFORMATION
  Report Type: 
  Country: None (occurrence: None)
  Receive Date: 20080725
  Receipt Date: 20080310
  Transmission Date: 20090109
  Serious: No
  Sender: FDA-Public Use
  Company Number: A0714306A

PATIENT
  Age: 66 Year
  Sex: Male

DRUGS (3)
  1. DYAZIDE [Suspect]
     Indication: HYPERTENSION
     Route: 048
     Dates: start: 20080301, end: 20080303
  2. ATENOLOL [Concomitant]
  3. HYDROCHLOROTHIAZIDE [Concomitant]

REACTIONS (1)
  - DIZZINESS [None]
